FAERS Safety Report 12718515 (Version 1)
Quarter: 2016Q3

REPORT INFORMATION
  Report Type: Spontaneous
  Country: US (occurrence: US)
  Receive Date: 20160906
  Receipt Date: 20160906
  Transmission Date: 20161109
  Serious: Yes (Hospitalization)
  Sender: FDA-Public Use
  Company Number: US-BIOMARINAP-US-2016-110959

PATIENT
  Age: 0 Day
  Sex: Male
  Weight: 5.64 kg

DRUGS (1)
  1. KUVAN [Suspect]
     Active Substance: SAPROPTERIN DIHYDROCHLORIDE
     Indication: PHENYLKETONURIA
     Dosage: 20 MG/KG, QD
     Route: 048
     Dates: start: 20070815

REACTIONS (8)
  - Shoulder dystocia [Not Recovered/Not Resolved]
  - Neonatal tachypnoea [Not Recovered/Not Resolved]
  - Birth trauma [Not Recovered/Not Resolved]
  - Brachial plexus injury [Not Recovered/Not Resolved]
  - Respiratory distress [Not Recovered/Not Resolved]
  - Hyperinsulinism [Not Recovered/Not Resolved]
  - Hypoglycaemia [Not Recovered/Not Resolved]
  - Large for dates baby [Not Recovered/Not Resolved]

NARRATIVE: CASE EVENT DATE: 20160823
